FAERS Safety Report 13140942 (Version 1)
Quarter: 2017Q1

REPORT INFORMATION
  Report Type: Spontaneous
  Country: US (occurrence: US)
  Receive Date: 20170123
  Receipt Date: 20170123
  Transmission Date: 20170428
  Serious: Yes (Hospitalization)
  Sender: FDA-Public Use
  Company Number: US-UNITED THERAPEUTICS-UNT-2016-015533

PATIENT
  Sex: Female

DRUGS (2)
  1. REMODULIN [Suspect]
     Active Substance: TREPROSTINIL
     Dosage: 0.061 ?G/KG, CONTINUING
     Route: 058
     Dates: start: 20151110
  2. REMODULIN [Suspect]
     Active Substance: TREPROSTINIL
     Indication: PULMONARY ARTERIAL HYPERTENSION
     Dosage: 0.061 ?G/KG, CONTINUING
     Route: 058
     Dates: start: 20150814

REACTIONS (2)
  - Infusion site infection [Recovering/Resolving]
  - Infusion site discharge [Not Recovered/Not Resolved]

NARRATIVE: CASE EVENT DATE: 20160926
